FAERS Safety Report 21173617 (Version 1)
Quarter: 2022Q3

REPORT INFORMATION
  Report Type: Spontaneous
  Country: US (occurrence: US)
  Receive Date: 20220804
  Receipt Date: 20220804
  Transmission Date: 20221027
  Serious: No
  Sender: FDA-Public Use
  Company Number: US-PERRIGO-21US009553

PATIENT
  Age: 85 Year
  Sex: Female
  Weight: 52.154 kg

DRUGS (2)
  1. LORATADINE [Suspect]
     Active Substance: LORATADINE
     Indication: Seasonal allergy
     Dosage: 10 MG, QD
     Route: 048
     Dates: start: 202005, end: 202006
  2. LORATADINE [Suspect]
     Active Substance: LORATADINE
     Dosage: 10 MG, QD
     Route: 048
     Dates: start: 202106, end: 202106

REACTIONS (2)
  - Peripheral swelling [Not Recovered/Not Resolved]
  - Joint swelling [Not Recovered/Not Resolved]

NARRATIVE: CASE EVENT DATE: 20200601
